FAERS Safety Report 24955200 (Version 2)
Quarter: 2025Q1

REPORT INFORMATION
  Report Type: Spontaneous
  Country: US (occurrence: US)
  Receive Date: 20250211
  Receipt Date: 20250220
  Transmission Date: 20250408
  Serious: No
  Sender: PADAGIS
  Company Number: US-PADAGIS-2025PAD00136

PATIENT

DRUGS (2)
  1. TRETINOIN [Suspect]
     Active Substance: TRETINOIN
     Indication: Skin disorder
     Route: 065
     Dates: start: 202009
  2. TRETINOIN [Suspect]
     Active Substance: TRETINOIN
     Route: 065

REACTIONS (4)
  - Pigmentation disorder [Unknown]
  - Incorrect dose administered [Unknown]
  - Expired product administered [Unknown]
  - Product use in unapproved indication [Unknown]
